FAERS Safety Report 13427980 (Version 2)
Quarter: 2017Q2

REPORT INFORMATION
  Report Type: Spontaneous
  Country: CH (occurrence: CH)
  Receive Date: 20170411
  Receipt Date: 20170417
  Transmission Date: 20170830
  Serious: Yes (Death, Hospitalization, Other)
  Sender: FDA-Public Use
  Company Number: CH-PFIZER INC-2017148410

PATIENT
  Age: 55 Year
  Sex: Male

DRUGS (10)
  1. TOREM /01036501/ [Concomitant]
     Active Substance: TORSEMIDE
     Dosage: 10 MG, 2X/DAY
     Dates: end: 20161202
  2. MARCOUMAR [Concomitant]
     Active Substance: PHENPROCOUMON
     Dosage: 3 MG, INR TARGET RANGE 2.0-2.5
  3. MAGNESIOCARD [Concomitant]
     Active Substance: MAGNESIUM ASPARTATE HYDROCHLORIDE
     Dosage: 5 MMOL, (0-0-2-0)
  4. REVATIO [Suspect]
     Active Substance: SILDENAFIL CITRATE
     Indication: PULMONARY ARTERIAL HYPERTENSION
     Dosage: 20 MG, 3X/DAY (1-1-1)
     Route: 048
     Dates: start: 201607, end: 20161202
  5. OPSUMIT [Suspect]
     Active Substance: MACITENTAN
     Indication: PULMONARY ARTERIAL HYPERTENSION
     Dosage: 10 MG, 1X/DAY, (1-0-0)
     Route: 048
     Dates: start: 201509, end: 20161202
  6. KCL HAUSMANN [Concomitant]
     Dosage: 10 MMOL, (2-0-2)
  7. REMODULIN [Suspect]
     Active Substance: TREPROSTINIL
     Indication: PULMONARY HYPERTENSION
     Dosage: 1.2 MG, 1X/DAY
     Route: 042
     Dates: start: 20160914, end: 20161202
  8. METOLAZON [Concomitant]
     Active Substance: METOLAZONE
     Dosage: 5 MG, 1X/DAY, (1-0-0)
  9. ALDACTONE [Concomitant]
     Active Substance: SPIRONOLACTONE
     Dosage: 50 MG, 1X/DAY, (1-0-0-0)
  10. VENTAVIS [Suspect]
     Active Substance: ILOPROST
     Indication: PULMONARY ARTERIAL HYPERTENSION
     Dosage: UNK
     Dates: end: 201607

REACTIONS (8)
  - Atrial fibrillation [Unknown]
  - Cor pulmonale [Unknown]
  - Right ventricular failure [Fatal]
  - Stenotrophomonas infection [Unknown]
  - Retroperitoneal fibrosis [Unknown]
  - Pneumonia [Unknown]
  - Sepsis [Unknown]
  - Atrial flutter [Unknown]

NARRATIVE: CASE EVENT DATE: 20161125
